FAERS Safety Report 4594151-9 (Version None)
Quarter: 2005Q1

REPORT INFORMATION
  Report Type: 
  Country: None (occurrence: None)
  Receive Date: 20050222
  Receipt Date: 20050207
  Transmission Date: 20050727
  Serious: Yes (Death)
  Sender: FDA-Public Use
  Company Number: S04-IRL-08253-01

PATIENT
  Age: 78 Year
  Sex: Female
  Weight: 81.8 kg

DRUGS (5)
  1. CITALOPRAM HYDROBROMIDE [Suspect]
     Indication: DEPRESSION
     Dosage: 40 MG QD
     Dates: start: 20030701, end: 20031001
  2. METFORMIN HCL [Concomitant]
  3. AVANDIA [Concomitant]
  4. GALFER (FERROUS FUMARATE) [Concomitant]
  5. AMITRIPTYLINE HCL [Concomitant]

REACTIONS (4)
  - CELLULITIS [None]
  - CIRCULATORY COLLAPSE [None]
  - DRUG LEVEL ABOVE THERAPEUTIC [None]
  - MYOCARDIAL INFARCTION [None]
